FAERS Safety Report 21666470 (Version 1)
Quarter: 2022Q4

REPORT INFORMATION
  Report Type: Spontaneous
  Country: MX (occurrence: None)
  Receive Date: 20221201
  Receipt Date: 20221201
  Transmission Date: 20230112
  Serious: Yes (Death)
  Sender: FDA-Public Use
  Company Number: MX-ROCHE-3228815

PATIENT
  Age: 62 Year
  Sex: Male
  Weight: 101 kg

DRUGS (7)
  1. ATEZOLIZUMAB [Suspect]
     Active Substance: ATEZOLIZUMAB
     Indication: Lung adenocarcinoma
     Route: 041
     Dates: start: 20221007, end: 20221118
  2. CARBOPLATIN [Concomitant]
     Active Substance: CARBOPLATIN
     Indication: Lung neoplasm malignant
     Dosage: DOSE AND FREQUENCY WERE NOT REPORTED. 6 CYCLES.
  3. CARBOPLATIN [Concomitant]
     Active Substance: CARBOPLATIN
     Dosage: DOSE AND FREQUENCY WERE NOT REPORTED. 4 CYCLES.
     Dates: start: 20210506
  4. PEMETREXED [Concomitant]
     Active Substance: PEMETREXED
     Indication: Lung neoplasm malignant
     Dosage: DOSE AND FREQUENCY WERE NOT REPORTED. 6 CYCLES
     Dates: start: 20210506
  5. GEFITINIB [Concomitant]
     Active Substance: GEFITINIB
     Indication: Lung neoplasm malignant
     Dosage: DOSE AND FREQUENCY WERE NOT REPORTED.
     Dates: start: 202106
  6. PREDNISONE [Concomitant]
     Active Substance: PREDNISONE
  7. PACLITAXEL [Concomitant]
     Active Substance: PACLITAXEL
     Indication: Lung neoplasm malignant
     Dosage: DOSE AND FREQUENCY WERE NOT REPORTED. 4 CYCLES.

REACTIONS (1)
  - Respiratory arrest [Fatal]

NARRATIVE: CASE EVENT DATE: 20221125
